FAERS Safety Report 5051896-4 (Version None)
Quarter: 2006Q3

REPORT INFORMATION
  Report Type: 
  Country: None (occurrence: None)
  Receive Date: 20060714
  Receipt Date: 20060703
  Transmission Date: 20061208
  Serious: Yes (Life-Threatening, Hospitalization)
  Sender: FDA-Public Use
  Company Number: GB-MERCK-0607GBR00031

PATIENT
  Sex: Male

DRUGS (3)
  1. CANCIDAS [Suspect]
     Indication: SYSTEMIC CANDIDA
     Route: 042
  2. VANCOMYCIN [Concomitant]
     Route: 065
  3. MEROPENEM [Concomitant]
     Route: 065

REACTIONS (3)
  - ARRHYTHMIA [None]
  - HYPOKALAEMIA [None]
  - HYPOMAGNESAEMIA [None]
